FAERS Safety Report 4282065-3 (Version None)
Quarter: 2004Q1

REPORT INFORMATION
  Report Type: 
  Country: None (occurrence: None)
  Receive Date: 20040130
  Receipt Date: 20021206
  Transmission Date: 20041129
  Serious: No
  Sender: FDA-Public Use
  Company Number: US-BRISTOL-MYERS SQUIBB COMPANY-12130480

PATIENT
  Age: 35 Year
  Sex: Male

DRUGS (2)
  1. TRAZODONE HCL [Suspect]
     Indication: ILL-DEFINED DISORDER
  2. WELLBUTRIN [Suspect]
     Indication: DEPRESSION
     Route: 048
     Dates: start: 20020601

REACTIONS (1)
  - ALOPECIA [None]
